FAERS Safety Report 14830046 (Version 1)
Quarter: 2018Q2

REPORT INFORMATION
  Report Type: Spontaneous
  Country: SE (occurrence: SE)
  Receive Date: 20180430
  Receipt Date: 20180430
  Transmission Date: 20180711
  Serious: Yes (Other)
  Sender: FDA-Public Use
  Company Number: SE-PFIZER INC-2018049168

PATIENT
  Age: 46 Year
  Sex: Female
  Weight: 57 kg

DRUGS (11)
  1. LEVAXIN [Concomitant]
     Active Substance: LEVOTHYROXINE SODIUM
     Indication: AUTOIMMUNE THYROIDITIS
  2. FOLIC ACID. [Concomitant]
     Active Substance: FOLIC ACID
     Dosage: 10 MG/ WEEK
     Dates: start: 201802
  3. AMLODIPINE [Concomitant]
     Active Substance: AMLODIPINE BESYLATE
     Dosage: 5 MG, 1X/DAY
     Dates: start: 2017
  4. LIOTHYRONINE [Concomitant]
     Active Substance: LIOTHYRONINE
     Dosage: 10 UG, 1X/DAY
     Dates: start: 2017
  5. PRAVIDEL /00412202/ [Concomitant]
     Indication: HYPOPITUITARISM
     Dosage: 2.5 MG, 1X/DAY
     Dates: start: 2015
  6. LEVAXIN [Concomitant]
     Active Substance: LEVOTHYROXINE SODIUM
     Indication: HYPOPITUITARISM
     Dosage: 125 UG, 1X/DAY
     Dates: start: 1986
  7. GENOTROPIN GOQUICK [Suspect]
     Active Substance: SOMATROPIN
     Indication: GROWTH HORMONE DEFICIENCY
     Dosage: 0.6 MG, DAILY
     Route: 058
     Dates: start: 201612
  8. METOJECT PEN [Concomitant]
     Active Substance: METHOTREXATE
     Dosage: 20 MG/ WEEK
     Dates: start: 201802
  9. GENOTROPIN GOQUICK [Suspect]
     Active Substance: SOMATROPIN
     Indication: HYPOPITUITARISM
  10. NOVORAPID [Concomitant]
     Active Substance: INSULIN ASPART
     Indication: TYPE 1 DIABETES MELLITUS
     Dosage: 14 IU, DAILY
     Dates: start: 1981
  11. LOSARTAN. [Concomitant]
     Active Substance: LOSARTAN
     Dosage: 100 MG, 1X/DAY
     Dates: start: 2017

REACTIONS (2)
  - Intentional product use issue [Unknown]
  - Polyarthritis [Recovering/Resolving]

NARRATIVE: CASE EVENT DATE: 201612
